FAERS Safety Report 16691827 (Version 1)
Quarter: 2019Q3

REPORT INFORMATION
  Report Type: Spontaneous
  Country: US (occurrence: US)
  Receive Date: 20190812
  Receipt Date: 20190812
  Transmission Date: 20191004
  Serious: No
  Sender: FDA-Public Use
  Company Number: PHEH2019US032966

PATIENT
  Age: 83 Year
  Sex: Female

DRUGS (1)
  1. TRAVATAN Z [Suspect]
     Active Substance: TRAVOPROST
     Indication: EYE DISORDER
     Route: 065

REACTIONS (3)
  - Fatigue [Unknown]
  - Hypoacusis [Unknown]
  - Product packaging quantity issue [Unknown]
